FAERS Safety Report 17812498 (Version 1)
Quarter: 2020Q2

REPORT INFORMATION
  Report Type: Spontaneous
  Country: JP (occurrence: JP)
  Receive Date: 20200521
  Receipt Date: 20200521
  Transmission Date: 20200714
  Serious: Yes (Other)
  Sender: FDA-Public Use
  Company Number: JP-GLAXOSMITHKLINE-JP2020JPN084284

PATIENT

DRUGS (1)
  1. RAPIVIR [Suspect]
     Active Substance: VALACYCLOVIR HYDROCHLORIDE
     Indication: PROPHYLAXIS
     Dosage: 500 MG, QD
     Route: 048

REACTIONS (2)
  - Herpes virus infection [Unknown]
  - Eczema herpeticum [Unknown]

NARRATIVE: CASE EVENT DATE: 2019
